FAERS Safety Report 6668817-0 (Version None)
Quarter: 2010Q2

REPORT INFORMATION
  Report Type: 
  Country: None (occurrence: None)
  Receive Date: 20100401
  Receipt Date: 20100329
  Transmission Date: 20101027
  Serious: Yes (Other)
  Sender: FDA-Public Use
  Company Number: 2010SP018567

PATIENT
  Age: 62 Year
  Sex: Male

DRUGS (5)
  1. NASONEX [Suspect]
     Indication: HYPERSENSITIVITY
     Dosage: 2 DF; QD; NAS
     Route: 045
     Dates: start: 20100106
  2. BENDROFLUMETHIAZIDE [Concomitant]
  3. RAMIPRIL [Concomitant]
  4. SERETIDE [Concomitant]
  5. VENTOLIN [Concomitant]

REACTIONS (3)
  - ERYTHEMA [None]
  - FLUSHING [None]
  - SKIN BURNING SENSATION [None]
